FAERS Safety Report 15308249 (Version 1)
Quarter: 2018Q4

REPORT INFORMATION
  Report Type: Spontaneous
  Country: IE (occurrence: IE)
  Receive Date: 20180822
  Receipt Date: 20180822
  Transmission Date: 20190204
  Serious: Yes (Other)
  Sender: FDA-Public Use
  Company Number: IE-TEVA-2018-IE-946368

PATIENT
  Age: 61 Year
  Sex: Male
  Weight: 82 kg

DRUGS (7)
  1. CLOPIDOGREL (GENERIC) [Suspect]
     Active Substance: CLOPIDOGREL BISULFATE
     Indication: ANGIOPLASTY
     Route: 048
     Dates: start: 20180719, end: 20180719
  2. ASPIRIN (GENERIC) [Suspect]
     Active Substance: ASPIRIN
     Route: 048
     Dates: start: 20180712, end: 20180719
  3. ATORVASTATIN (GENERIC) [Concomitant]
     Active Substance: ATORVASTATIN
     Indication: CORONARY ARTERY DISEASE
     Route: 048
     Dates: start: 20180719, end: 20180719
  4. GLYCERYL TRINITRATE (G) [Concomitant]
     Indication: ANGIOPLASTY
     Dosage: INTRA PROCEDURE
     Route: 048
     Dates: start: 20180719, end: 20180719
  5. MIDAZOLAM (G) [Suspect]
     Active Substance: MIDAZOLAM HYDROCHLORIDE
     Route: 042
     Dates: start: 20180719, end: 20180719
  6. HEPARIN (GENERIC) [Concomitant]
     Indication: ANGIOPLASTY
     Dosage: INTRA PROCEDURE
     Route: 048
     Dates: start: 20180719
  7. OMNIPAQUE [Suspect]
     Active Substance: IOHEXOL
     Indication: ANGIOPLASTY
     Dates: start: 20180719, end: 20180719

REACTIONS (1)
  - Urticaria [Recovered/Resolved]

NARRATIVE: CASE EVENT DATE: 20180719
